FAERS Safety Report 10384858 (Version 2)
Quarter: 2014Q3

REPORT INFORMATION
  Report Type: Report from Study
  Country: BR (occurrence: BR)
  Receive Date: 20140814
  Receipt Date: 20140814
  Transmission Date: 20150326
  Serious: Yes (Hospitalization, Disabling, Other)
  Sender: FDA-Public Use
  Company Number: BR-ABBVIE-11P-020-0882142-00

PATIENT
  Age: 65 Year
  Sex: Female
  Weight: 71 kg

DRUGS (8)
  1. NUTRICAL D [Concomitant]
     Route: 048
     Dates: start: 2011
  2. HUMIRA [Suspect]
     Active Substance: ADALIMUMAB
     Indication: RHEUMATOID ARTHRITIS
     Route: 058
     Dates: start: 2009
  3. DIAZEPINE 50 MG/ VITAMIN B12 1000 MCG/ CYCLOBENZAPRINE 5 MG [Concomitant]
     Indication: RHEUMATOID ARTHRITIS
     Route: 048
  4. VITAMIN B COMPLEX [Concomitant]
     Active Substance: CYANOCOBALAMIN\DEXPANTHENOL\NIACINAMIDE\PYRIDOXINE HYDROCHLORIDE\RIBOFLAVIN 5^-PHOSPHATE SODIUM\THIAMINE HYDROCHLORIDE\VITAMIN B COMPLEX
     Indication: VITAMIN SUPPLEMENTATION
     Route: 048
  5. ISOFLAVONE [Concomitant]
     Active Substance: ISOFLAVONE
     Indication: RHEUMATOID ARTHRITIS
     Route: 048
  6. IBUPROFEN. [Concomitant]
     Active Substance: IBUPROFEN
     Indication: PAIN
     Route: 048
     Dates: start: 2012
  7. AAS [Concomitant]
     Active Substance: ASPIRIN
     Indication: ANTICOAGULANT THERAPY
     Route: 048
     Dates: start: 201212
  8. NUTRICAL D [Concomitant]
     Indication: BONE DISORDER
     Route: 048

REACTIONS (7)
  - Hemiplegia [Recovering/Resolving]
  - Confusional state [Recovering/Resolving]
  - Blood cholesterol abnormal [Unknown]
  - Hypertension [Recovered/Resolved]
  - Cerebrovascular accident [Unknown]
  - Trismus [Recovering/Resolving]
  - Aphasia [Recovering/Resolving]

NARRATIVE: CASE EVENT DATE: 20111130
